FAERS Safety Report 23171656 (Version 1)
Quarter: 2023Q4

REPORT INFORMATION
  Report Type: Report from Study
  Country: KR (occurrence: KR)
  Receive Date: 20231110
  Receipt Date: 20231110
  Transmission Date: 20240110
  Serious: Yes (Hospitalization)
  Sender: FDA-Public Use
  Company Number: KR-PFIZER INC-PV202300171452

PATIENT
  Age: 66 Year
  Sex: Male
  Weight: 76 kg

DRUGS (7)
  1. INLYTA [Suspect]
     Active Substance: AXITINIB
     Indication: Adenoid cystic carcinoma
     Dosage: 2 MG, 2X/DAY
     Route: 048
     Dates: start: 20230510, end: 20231016
  2. NAVELBINE [Suspect]
     Active Substance: VINORELBINE TARTRATE
     Dosage: 12 MG/M2, CYCLIC(EVERY 3 WEEKS, D1, D8)
     Route: 042
     Dates: start: 20220926, end: 20221221
  3. CISPLATIN [Suspect]
     Active Substance: CISPLATIN
     Dosage: 36 MG/M2, CYCLIC(EVERY 3 WEEKS, D1)
     Route: 042
     Dates: start: 20220926, end: 20221214
  4. OXYCODONE HYDROCHLORIDE [Concomitant]
     Active Substance: OXYCODONE HYDROCHLORIDE
     Indication: Pain in jaw
     Dosage: UNK
     Route: 048
     Dates: start: 20221116
  5. BONALING A [Concomitant]
     Indication: Dizziness
     Dosage: UNK
     Route: 048
     Dates: start: 20221123
  6. CYMBALTA [Concomitant]
     Active Substance: DULOXETINE HYDROCHLORIDE
     Indication: Peripheral sensory neuropathy
     Dosage: UNK
     Route: 048
     Dates: start: 20221025
  7. NALOXONE HYDROCHLORIDE\OXYCODONE HYDROCHLORIDE [Concomitant]
     Active Substance: NALOXONE HYDROCHLORIDE\OXYCODONE HYDROCHLORIDE
     Indication: Pain in jaw
     Dosage: UNK
     Route: 048
     Dates: start: 20230215

REACTIONS (1)
  - Hemiparesis [Recovered/Resolved]

NARRATIVE: CASE EVENT DATE: 20231011
